FAERS Safety Report 9219484 (Version 1)
Quarter: 2013Q1

REPORT INFORMATION
  Report Type: Spontaneous
  Country: US (occurrence: None)
  Receive Date: 20120828
  Receipt Date: 20120828
  Transmission Date: 20140127
  Serious: Yes (Other)
  Sender: FDA-Public Use
  Company Number: 2011BH030114

PATIENT
  Age: 28 Year
  Sex: 0

DRUGS (4)
  1. KIOVIG_LIQUID_10%_SOLUTION FOR INFUSION_VIAL, GLASS(IMMUNOGLOBULIN, NORMAL HUMAN)(SOLUTION FOR INFUSION) [Suspect]
     Indication: PRODUCT USED FOR UNKNOWN INDICATION
  2. TYLENOL (UNKNOWN [Concomitant]
  3. BENADRYL (UNKNOWN) [Concomitant]
  4. CORTICOSTEROIDS (CORTICOSTEROIDS) (UNKNOWN) [Concomitant]

REACTIONS (1)
  - Meningitis aseptic [None]
